FAERS Safety Report 7770515-7 (Version None)
Quarter: 2011Q3

REPORT INFORMATION
  Report Type: 
  Country: None (occurrence: None)
  Receive Date: 20110922
  Receipt Date: 20101104
  Transmission Date: 20111222
  Serious: No
  Sender: FDA-Public Use
  Company Number: US-ASTRAZENECA-2010SE52704

PATIENT
  Age: 44 Year
  Sex: Male

DRUGS (2)
  1. MORPHINE [Concomitant]
  2. SEROQUEL [Suspect]
     Route: 048
     Dates: start: 20050101

REACTIONS (1)
  - BLOOD TESTOSTERONE DECREASED [None]
